FAERS Safety Report 5300296-8 (Version None)
Quarter: 2007Q2

REPORT INFORMATION
  Report Type: 
  Country: None (occurrence: None)
  Receive Date: 20070418
  Receipt Date: 20070405
  Transmission Date: 20071010
  Serious: Yes (Other)
  Sender: FDA-Public Use
  Company Number: PHBS2007JP06138

PATIENT

DRUGS (2)
  1. SANDOSTATIN [Suspect]
     Indication: INSULINOMA
     Dosage: UNK, UNK
     Route: 042
     Dates: end: 20070330
  2. CORTRIL [Concomitant]

REACTIONS (4)
  - PANCYTOPENIA [None]
  - PLATELET COUNT DECREASED [None]
  - RED BLOOD CELL COUNT DECREASED [None]
  - WHITE BLOOD CELL COUNT DECREASED [None]
